FAERS Safety Report 9513125 (Version 1)
Quarter: 2013Q1

REPORT INFORMATION
  Report Type: Spontaneous
  Country: US (occurrence: None)
  Receive Date: 20130305
  Receipt Date: 20130305
  Transmission Date: 20140127
  Serious: Yes (Other)
  Sender: FDA-Public Use
  Company Number: 163-21880-12102523

PATIENT
  Age: 59 Year
  Sex: Female
  Weight: 61.69 kg

DRUGS (5)
  1. REVLIMID [Suspect]
     Indication: PLASMA CELL MYELOMA
     Dosage: 1 IN 1 D
     Route: 048
     Dates: start: 20111001
  2. BABY ASPIRIN [Concomitant]
  3. LEVOTHYROXIN [Concomitant]
  4. VALTREX [Concomitant]
  5. BENADRYL [Concomitant]

REACTIONS (1)
  - Rash generalised [None]
